FAERS Safety Report 24061990 (Version 1)
Quarter: 2024Q3

REPORT INFORMATION
  Report Type: Spontaneous
  Country: US (occurrence: None)
  Receive Date: 20240707
  Receipt Date: 20240707
  Transmission Date: 20241016
  Serious: Yes (unspecified)
  Sender: Public
  Company Number: None

PATIENT
  Age: 36 Year
  Sex: Female
  Weight: 83.25 kg

DRUGS (3)
  1. SUMATRIPTAN SUCCINATE [Suspect]
     Active Substance: SUMATRIPTAN SUCCINATE
     Indication: Migraine
     Dosage: 1 TABLET AS NEEDED ORAL
     Route: 048
     Dates: start: 20240706, end: 20240706
  2. LEVOTHYROXINE [Concomitant]
     Active Substance: LEVOTHYROXINE\LEVOTHYROXINE SODIUM
  3. SLYND [Concomitant]
     Active Substance: DROSPIRENONE

REACTIONS (5)
  - Dizziness [None]
  - Feeling drunk [None]
  - Loss of consciousness [None]
  - Memory impairment [None]
  - Eating disorder [None]

NARRATIVE: CASE EVENT DATE: 20240706
